FAERS Safety Report 7995479-2 (Version None)
Quarter: 2011Q4

REPORT INFORMATION
  Report Type: 
  Country: None (occurrence: None)
  Receive Date: 20111220
  Receipt Date: 20111209
  Transmission Date: 20120403
  Serious: Yes (Hospitalization)
  Sender: FDA-Public Use
  Company Number: US-BAYER-2011-051385

PATIENT
  Age: 42 Year
  Sex: Female
  Weight: 63.492 kg

DRUGS (11)
  1. YASMIN [Suspect]
     Indication: ACNE
  2. SULFAMETHAZINE [Concomitant]
     Indication: CELLULITIS
     Dosage: UNK UNK, BID
     Route: 048
  3. CLINDAMYCIN [Concomitant]
     Dosage: 300 MG, QID
     Route: 048
     Dates: start: 20090719, end: 20090727
  4. YASMIN [Suspect]
     Indication: CONTRACEPTION
     Dosage: UNK
     Dates: start: 20051127, end: 20060522
  5. YAZ [Suspect]
     Indication: ACNE
  6. YAZ [Suspect]
     Indication: PREMENSTRUAL SYNDROME
  7. CLOBETASOL [Concomitant]
     Indication: LICHEN SCLEROSUS
     Dosage: UNK
     Route: 061
     Dates: start: 20090201, end: 20090727
  8. BACTRIM [Concomitant]
  9. ESTRACE [Concomitant]
     Indication: LICHEN SCLEROSUS
     Dosage: UNK
     Dates: start: 20090201, end: 20090727
  10. YASMIN [Suspect]
     Indication: PREMENSTRUAL SYNDROME
  11. YAZ [Suspect]
     Indication: CONTRACEPTION
     Dosage: UNK
     Dates: start: 20090106, end: 20090727

REACTIONS (9)
  - INJURY [None]
  - ANXIETY [None]
  - DEEP VEIN THROMBOSIS [None]
  - EMOTIONAL DISTRESS [None]
  - GENERAL PHYSICAL HEALTH DETERIORATION [None]
  - SWELLING [None]
  - PAIN IN EXTREMITY [None]
  - JOINT RANGE OF MOTION DECREASED [None]
  - ERYTHEMA [None]
